FAERS Safety Report 23779616 (Version 1)
Quarter: 2024Q2

REPORT INFORMATION
  Report Type: Report from Study
  Country: FR (occurrence: FR)
  Receive Date: 20240424
  Receipt Date: 20240424
  Transmission Date: 20240715
  Serious: Yes (Hospitalization, Other)
  Sender: FDA-Public Use
  Company Number: FR-SPRINGWORKS THERAPEUTICS-SW-001566

PATIENT

DRUGS (4)
  1. NIROGACESTAT [Suspect]
     Active Substance: NIROGACESTAT
     Indication: Product used for unknown indication
     Dosage: UNK
     Dates: start: 20240402, end: 20240415
  2. LEVOTHYROXINE [Concomitant]
     Active Substance: LEVOTHYROXINE\LEVOTHYROXINE SODIUM
     Indication: Hypothyroidism
     Dosage: 100 MICROGRAM, 1-0-0
     Route: 048
  3. PREGABALIN [Concomitant]
     Active Substance: PREGABALIN
     Indication: Pain
     Dosage: 150 MILLIGRAM, 1-0-0
     Route: 048
  4. FENTANYL [Concomitant]
     Active Substance: FENTANYL\FENTANYL CITRATE
     Indication: Pain
     Dosage: 75 MICROGRAM, Q48H
     Route: 062

REACTIONS (5)
  - Mouth ulceration [Not Recovered/Not Resolved]
  - Rash papular [Not Recovered/Not Resolved]
  - Nausea [Not Recovered/Not Resolved]
  - Diarrhoea [Not Recovered/Not Resolved]
  - Headache [Not Recovered/Not Resolved]

NARRATIVE: CASE EVENT DATE: 20240403
